FAERS Safety Report 5916141-3 (Version None)
Quarter: 2008Q4

REPORT INFORMATION
  Report Type: 
  Country: None (occurrence: None)
  Receive Date: 20081009
  Receipt Date: 20080925
  Transmission Date: 20090506
  Serious: Yes (Other)
  Sender: FDA-Public Use
  Company Number: 2008BI023634

PATIENT
  Age: 57 Year
  Sex: Female
  Weight: 61.6892 kg

DRUGS (4)
  1. TYSABRI [Suspect]
     Indication: MULTIPLE SCLEROSIS
     Dosage: 300 MG; QM; IV
     Route: 042
     Dates: start: 20080320
  2. SYNTHROID [Concomitant]
  3. ELMIRON [Concomitant]
  4. . [Concomitant]

REACTIONS (11)
  - ANXIETY [None]
  - BLOOD THYROID STIMULATING HORMONE DECREASED [None]
  - CHEST PAIN [None]
  - HYPERTENSION [None]
  - MIGRAINE [None]
  - NAUSEA [None]
  - PARAESTHESIA [None]
  - SINUSITIS [None]
  - STRESS [None]
  - THYROID DISORDER [None]
  - THYROXINE FREE INCREASED [None]
